FAERS Safety Report 8059998-5 (Version None)
Quarter: 2012Q1

REPORT INFORMATION
  Report Type: 
  Country: None (occurrence: None)
  Receive Date: 20120120
  Receipt Date: 20120117
  Transmission Date: 20120608
  Serious: Yes (Hospitalization, Disabling, Other)
  Sender: FDA-Public Use
  Company Number: US-PFIZER INC-2011151565

PATIENT
  Sex: Male

DRUGS (1)
  1. CHANTIX [Suspect]
     Indication: SMOKING CESSATION THERAPY
     Dosage: UNK
     Route: 048
     Dates: start: 20070101, end: 20070222

REACTIONS (6)
  - INTENTIONAL OVERDOSE [None]
  - BACK INJURY [None]
  - PAIN IN EXTREMITY [None]
  - SUICIDE ATTEMPT [None]
  - INJURY [None]
  - BACK PAIN [None]
